FAERS Safety Report 4798080-7 (Version None)
Quarter: 2005Q4

REPORT INFORMATION
  Report Type: 
  Country: None (occurrence: None)
  Receive Date: 20051011
  Receipt Date: 20051011
  Transmission Date: 20060501
  Serious: No
  Sender: FDA-Public Use
  Company Number: None

PATIENT
  Age: 51 Year
  Sex: Male
  Weight: 104.3273 kg

DRUGS (2)
  1. NEXIUM [Suspect]
     Indication: ERUCTATION
     Dosage: 40MG ONCE A DAY BY MOUTH
     Dates: start: 20041001
  2. NEXIUM [Suspect]
     Indication: GASTROOESOPHAGEAL REFLUX DISEASE
     Dosage: 40MG ONCE A DAY BY MOUTH
     Dates: start: 20041001

REACTIONS (2)
  - ERUCTATION [None]
  - PHARMACEUTICAL PRODUCT COMPLAINT [None]
